FAERS Safety Report 14151356 (Version 2)
Quarter: 2018Q3

REPORT INFORMATION
  Report Type: Spontaneous
  Country: US (occurrence: US)
  Receive Date: 20171102
  Receipt Date: 20180829
  Transmission Date: 20181010
  Serious: Yes (Other)
  Sender: FDA-Public Use
  Company Number: PHEH2017US035413

PATIENT
  Sex: Female

DRUGS (2)
  1. DOCETAXEL. [Suspect]
     Active Substance: DOCETAXEL
     Indication: BREAST CANCER
     Route: 065
     Dates: start: 20150803, end: 20151116
  2. TAXOTERE [Suspect]
     Active Substance: DOCETAXEL
     Indication: BREAST CANCER
     Route: 065
     Dates: start: 20150803, end: 20151116

REACTIONS (11)
  - Emotional distress [Unknown]
  - Discomfort [Unknown]
  - Anhedonia [Unknown]
  - Alopecia [Not Recovered/Not Resolved]
  - Injury [Unknown]
  - Anxiety [Unknown]
  - Shock [Unknown]
  - Hair texture abnormal [Unknown]
  - Pain [Unknown]
  - Madarosis [Unknown]
  - Deformity [Not Recovered/Not Resolved]
